FAERS Safety Report 4359457-7 (Version None)
Quarter: 2004Q2

REPORT INFORMATION
  Report Type: 
  Country: None (occurrence: None)
  Receive Date: 20040511
  Receipt Date: 20040429
  Transmission Date: 20050107
  Serious: Yes (Hospitalization)
  Sender: FDA-Public Use
  Company Number: A-CH2004-06003

PATIENT
  Age: 1 Year
  Sex: Female

DRUGS (2)
  1. TRACLEER [Suspect]
     Indication: PULMONARY HYPERTENSION
  2. OXYGEN (OXYGEN) [Concomitant]

REACTIONS (3)
  - ANOREXIA [None]
  - GASTROSTOMY [None]
  - SURGERY [None]
